FAERS Safety Report 8531201-9 (Version None)
Quarter: 2012Q3

REPORT INFORMATION
  Report Type: 
  Country: None (occurrence: None)
  Receive Date: 20120723
  Receipt Date: 20120709
  Transmission Date: 20120928
  Serious: Yes (Hospitalization, Other)
  Sender: FDA-Public Use
  Company Number: CH-ELI_LILLY_AND_COMPANY-CH201111006869

PATIENT
  Sex: Female
  Weight: 98 kg

DRUGS (5)
  1. CYMBALTA [Suspect]
     Indication: DEPRESSION
     Dosage: 120 MG, QD
     Route: 048
     Dates: start: 20110202
  2. ACETAMINOPHEN [Concomitant]
     Indication: ARTHRALGIA
     Dosage: 4 G, QD
     Route: 048
     Dates: start: 20110608
  3. LYRICA [Concomitant]
     Indication: MOOD SWINGS
     Dosage: 100 MG, QD
     Route: 048
     Dates: start: 20110705
  4. SEROQUEL [Concomitant]
     Indication: INSOMNIA
     Dosage: 25 MG, QD
     Route: 048
     Dates: start: 20100407
  5. ALCOHOL [Concomitant]

REACTIONS (5)
  - OFF LABEL USE [None]
  - ALCOHOL ABUSE [None]
  - HEPATIC ENZYME INCREASED [None]
  - GAMMA-GLUTAMYLTRANSFERASE INCREASED [None]
  - DRUG ABUSE [None]
